FAERS Safety Report 7110954-0 (Version None)
Quarter: 2010Q4

REPORT INFORMATION
  Report Type: 
  Country: None (occurrence: None)
  Receive Date: 20101118
  Receipt Date: 20091026
  Transmission Date: 20110411
  Serious: Yes (Hospitalization)
  Sender: FDA-Public Use
  Company Number: US-TEVA-212074USA

PATIENT
  Sex: Male
  Weight: 81.72 kg

DRUGS (4)
  1. ALBUTEROL SULFATE AUTOHALER [Suspect]
     Indication: ASTHMA
     Dosage: 2 PUFFS PRN
     Route: 055
     Dates: start: 20091006
  2. IBUPROFEN [Suspect]
  3. BUDESONIDE W/FORMOTEROL FUMARATE [Concomitant]
  4. MOMETASONE FUROATE [Concomitant]

REACTIONS (3)
  - CHEST DISCOMFORT [None]
  - DYSPNOEA [None]
  - FEELING ABNORMAL [None]
